FAERS Safety Report 20328359 (Version 1)
Quarter: 2022Q1

REPORT INFORMATION
  Report Type: Spontaneous
  Country: BR (occurrence: None)
  Receive Date: 20220112
  Receipt Date: 20220112
  Transmission Date: 20220423
  Serious: Yes (Death)
  Sender: FDA-Public Use
  Company Number: 2022A012873

PATIENT
  Age: 67 Year
  Sex: Male

DRUGS (4)
  1. FASENRA [Suspect]
     Active Substance: BENRALIZUMAB
     Indication: Chronic obstructive pulmonary disease
     Route: 058
     Dates: start: 2021
  2. FORASEC [Concomitant]
  3. PREDNISONE [Concomitant]
     Active Substance: PREDNISONE
  4. SPIRIVA [Concomitant]
     Active Substance: TIOTROPIUM BROMIDE MONOHYDRATE

REACTIONS (3)
  - Acute respiratory failure [Fatal]
  - Skin discolouration [Unknown]
  - Malaise [Unknown]

NARRATIVE: CASE EVENT DATE: 20211224
